FAERS Safety Report 7360700-0 (Version None)
Quarter: 2011Q1

REPORT INFORMATION
  Report Type: 
  Country: None (occurrence: None)
  Receive Date: 20110318
  Receipt Date: 20110315
  Transmission Date: 20110831
  Serious: Yes (Hospitalization)
  Sender: FDA-Public Use
  Company Number: US-BRISTOL-MYERS SQUIBB COMPANY-15578115

PATIENT
  Age: 55 Year
  Sex: Female
  Weight: 59 kg

DRUGS (10)
  1. HYDROCHLOROTHIAZIDE [Concomitant]
     Indication: BLOOD PRESSURE ABNORMAL
     Route: 048
     Dates: start: 20110216
  2. METFORMIN HCL [Concomitant]
     Indication: DIABETES MELLITUS
     Route: 048
     Dates: start: 20060501
  3. ASPIRIN [Concomitant]
     Indication: PAIN
     Route: 048
     Dates: start: 20110301
  4. IXEMPRA KIT [Suspect]
     Indication: BREAST CANCER METASTATIC
     Dosage: LAST DOSE:07FEB2011 CYCLE NO:2
     Route: 042
     Dates: start: 20110111, end: 20110207
  5. AMLODIPINE [Concomitant]
     Indication: HYPERTENSION
     Route: 048
     Dates: start: 20110101
  6. LIDODERM [Concomitant]
     Indication: PAIN
     Dosage: 1 DF=5 PERCENT
     Dates: start: 20110301
  7. SORAFENIB [Suspect]
     Indication: BREAST CANCER METASTATIC
     Dosage: COURSE NO:2 LAST DOSE:19FEB11
     Route: 048
     Dates: start: 20110111, end: 20110219
  8. VITAMIN D [Concomitant]
     Indication: VITAMIN D DEFICIENCY
     Dosage: 1 DF: 1000 U
     Route: 048
     Dates: start: 20091201
  9. GLYBURIDE [Concomitant]
     Indication: DIABETES MELLITUS
     Route: 048
     Dates: start: 20060501
  10. SIMVASTATIN [Concomitant]
     Indication: BLOOD CHOLESTEROL
     Route: 048
     Dates: start: 20110301

REACTIONS (2)
  - CEREBROVASCULAR ACCIDENT [None]
  - JOINT DISLOCATION [None]
